FAERS Safety Report 5036788-9 (Version None)
Quarter: 2006Q2

REPORT INFORMATION
  Report Type: 
  Country: None (occurrence: None)
  Receive Date: 20060622
  Receipt Date: 20060613
  Transmission Date: 20061013
  Serious: Yes (Hospitalization)
  Sender: FDA-Public Use
  Company Number: 226267

PATIENT
  Age: 48 Year
  Sex: Female
  Weight: 96.1 kg

DRUGS (3)
  1. AVASTIN [Suspect]
     Indication: BREAST CANCER
     Dosage: 5 MG/KG, Q2W, INTRAVENOUS
     Route: 042
     Dates: start: 20050201, end: 20060309
  2. RITUXAN [Concomitant]
  3. NAVELBINE [Concomitant]

REACTIONS (9)
  - ANAEMIA [None]
  - BLOOD CULTURE POSITIVE [None]
  - CULTURE TISSUE SPECIMEN POSITIVE [None]
  - ENTEROCOCCAL INFECTION [None]
  - LEUKOPENIA [None]
  - NECROTISING FASCIITIS [None]
  - STAPHYLOCOCCAL INFECTION [None]
  - STREPTOCOCCAL INFECTION [None]
  - THROMBOCYTOPENIA [None]
